FAERS Safety Report 6994414-3 (Version None)
Quarter: 2010Q3

REPORT INFORMATION
  Report Type: 
  Country: None (occurrence: None)
  Receive Date: 20100917
  Receipt Date: 20100907
  Transmission Date: 20110219
  Serious: Yes (Hospitalization)
  Sender: FDA-Public Use
  Company Number: US-JNJFOC-20100800588

PATIENT
  Sex: Male
  Weight: 15.8 kg

DRUGS (2)
  1. CHILDREN'S TYLENOL PLUS COLD AND ALLERGY [Suspect]
     Indication: NASAL CONGESTION
  2. CHILDREN'S TYLENOL PLUS COLD AND ALLERGY [Suspect]
     Indication: RHINORRHOEA

REACTIONS (2)
  - PRODUCT QUALITY ISSUE [None]
  - TIC [None]
